FAERS Safety Report 10089510 (Version 1)
Quarter: 2014Q2

REPORT INFORMATION
  Report Type: Spontaneous
  Country: US (occurrence: None)
  Receive Date: 20140418
  Receipt Date: 20140418
  Transmission Date: 20141212
  Serious: No
  Sender: FDA-Public Use
  Company Number: None

PATIENT
  Age: 66 Year
  Sex: Female

DRUGS (2)
  1. OMNIPAQUE [Suspect]
     Indication: SCAN WITH CONTRAST
     Dosage: 1CCX1 EPIDURAL
     Dates: start: 20140416
  2. OMNIPAQUE [Suspect]
     Indication: PAIN
     Dosage: 1CCX1 EPIDURAL
     Dates: start: 20140416

REACTIONS (1)
  - Product quality issue [None]
